FAERS Safety Report 11414519 (Version 3)
Quarter: 2015Q3

REPORT INFORMATION
  Report Type: Spontaneous
  Country: JP (occurrence: JP)
  Receive Date: 20150824
  Receipt Date: 20150909
  Transmission Date: 20151125
  Serious: Yes (Other)
  Sender: FDA-Public Use
  Company Number: JP-BRISTOL-MYERS SQUIBB COMPANY-BMS-2015-056040

PATIENT
  Age: 67 Year
  Sex: Male
  Weight: 43 kg

DRUGS (12)
  1. DEXART [Suspect]
     Active Substance: DEXAMETHASONE SODIUM PHOSPHATE
     Indication: PREMEDICATION
     Dosage: 9.9 MG, QD
     Route: 042
     Dates: start: 20150714, end: 20150714
  2. ERBITUX [Suspect]
     Active Substance: CETUXIMAB
     Dosage: 360 MG, QWK
     Route: 041
     Dates: start: 20150721, end: 20150728
  3. 5-FU                               /00098801/ [Concomitant]
     Active Substance: FLUOROURACIL
     Indication: TONGUE NEOPLASM MALIGNANT STAGE UNSPECIFIED
     Dosage: 1000 MG, QD
     Route: 041
     Dates: start: 20150714, end: 20150718
  4. NOVORAPID [Concomitant]
     Active Substance: INSULIN ASPART
     Indication: DIABETES MELLITUS
     Dosage: UNK, TID
     Route: 058
  5. CISPLATIN. [Suspect]
     Active Substance: CISPLATIN
     Indication: TONGUE NEOPLASM MALIGNANT STAGE UNSPECIFIED
     Dosage: 100 MG, UNK
     Route: 041
     Dates: start: 20150714, end: 20150714
  6. TRAMAL [Concomitant]
     Active Substance: TRAMADOL
     Indication: PAIN
     Dosage: 50 MG, Q6H
     Route: 048
     Dates: start: 20150522, end: 20150726
  7. LOXOPROFEN [Concomitant]
     Active Substance: LOXOPROFEN
     Indication: PAIN
     Dosage: 60 MG, UNK
     Route: 048
     Dates: start: 20150522, end: 20150726
  8. LANTUS [Concomitant]
     Active Substance: INSULIN GLARGINE
     Indication: DIABETES MELLITUS
     Dosage: UNK, QD
     Route: 058
  9. REBAMIPIDE [Concomitant]
     Active Substance: REBAMIPIDE
     Indication: GASTRITIS
     Dosage: 100 MG, TID
     Route: 048
     Dates: start: 20150522, end: 20150726
  10. ERBITUX [Suspect]
     Active Substance: CETUXIMAB
     Indication: TONGUE NEOPLASM MALIGNANT STAGE UNSPECIFIED
     Dosage: 570 MG, QWK
     Route: 041
     Dates: start: 20150714, end: 20150714
  11. MINOCYCLINE [Concomitant]
     Active Substance: MINOCYCLINE\MINOCYCLINE HYDROCHLORIDE
     Indication: PROPHYLAXIS
     Dosage: 50 MG, BID
     Route: 048
  12. DEXART [Suspect]
     Active Substance: DEXAMETHASONE SODIUM PHOSPHATE
     Dosage: 6.6 MG, QD
     Route: 042
     Dates: start: 20150728, end: 20150728

REACTIONS (2)
  - Nausea [Unknown]
  - Glaucoma [Recovered/Resolved]

NARRATIVE: CASE EVENT DATE: 20150718
